FAERS Safety Report 22538845 (Version 2)
Quarter: 2023Q2

REPORT INFORMATION
  Report Type: Spontaneous
  Country: FR (occurrence: FR)
  Receive Date: 20230609
  Receipt Date: 20230609
  Transmission Date: 20230722
  Serious: Yes (Hospitalization)
  Sender: FDA-Public Use
  Company Number: FR-ROCHE-3364535

PATIENT
  Age: 88 Year
  Sex: Male

DRUGS (13)
  1. RIVOTRIL [Suspect]
     Active Substance: CLONAZEPAM
     Indication: Product used for unknown indication
     Dosage: 0-0-0-15; AT BED TIME
     Route: 065
  2. NITROGLYCERIN [Concomitant]
     Active Substance: NITROGLYCERIN
  3. VITAMIN A [Concomitant]
     Active Substance: VITAMIN A
     Dosage: OPHTHALMIC OINTMENT, 1 APP IN BOTH EYES IN THE EVENING
  4. FLUOROMETHOLONE [Concomitant]
     Active Substance: FLUOROMETHOLONE
  5. LYRICA [Concomitant]
     Active Substance: PREGABALIN
     Dosage: 1.0.1
  6. LYRICA [Concomitant]
     Active Substance: PREGABALIN
     Dosage: 0.1.0
  7. HUMALOG [Concomitant]
     Active Substance: INSULIN LISPRO
     Dosage: 3U, 0.0.1
  8. AZARGA [Concomitant]
     Active Substance: BRINZOLAMIDE\TIMOLOL MALEATE
     Dosage: IN BOTH EYES MORNING AND EVENING
  9. PLAVIX [Concomitant]
     Active Substance: CLOPIDOGREL BISULFATE
     Dosage: 0.1.0
  10. TRESIBA [Concomitant]
     Active Substance: INSULIN DEGLUDEC
     Dosage: 20U, 0.0.1
  11. FUROSEMIDE [Concomitant]
     Active Substance: FUROSEMIDE
     Dosage: 1.0.0
  12. LATANOPROST [Concomitant]
     Active Substance: LATANOPROST
     Dosage: BOTH EYES IN THE EVENING
  13. HYLO CONFORT [Concomitant]

REACTIONS (3)
  - Urinary retention [Recovered/Resolved]
  - Depressed level of consciousness [Recovered/Resolved]
  - Overdose [Unknown]

NARRATIVE: CASE EVENT DATE: 20230202
